FAERS Safety Report 26073677 (Version 2)
Quarter: 2025Q4

REPORT INFORMATION
  Report Type: Report from Study
  Country: US (occurrence: US)
  Receive Date: 20251121
  Receipt Date: 20251214
  Transmission Date: 20260118
  Serious: Yes (Death, Hospitalization, Other)
  Sender: BAUSCH AND LOMB
  Company Number: US-BAUSCH-BH-2025-020641

PATIENT
  Age: 58 Year
  Sex: Male

DRUGS (3)
  1. XIFAXAN [Suspect]
     Active Substance: RIFAXIMIN
     Indication: Hepatic cancer
     Route: 065
     Dates: start: 202508, end: 2025
  2. XIFAXAN [Suspect]
     Active Substance: RIFAXIMIN
     Indication: Amnesia
     Route: 065
     Dates: start: 20251111
  3. XIFAXAN [Suspect]
     Active Substance: RIFAXIMIN
     Indication: Hallucination

REACTIONS (9)
  - Neoplasm malignant [Fatal]
  - Hallucination [Unknown]
  - Amnesia [Unknown]
  - Ammonia increased [Recovering/Resolving]
  - Hepatic cancer [Unknown]
  - Condition aggravated [Unknown]
  - Confusional state [Unknown]
  - Therapy interrupted [Unknown]
  - Insurance issue [Unknown]

NARRATIVE: CASE EVENT DATE: 20250101
